FAERS Safety Report 9652122 (Version 1)
Quarter: 2013Q4

REPORT INFORMATION
  Report Type: Report from Study
  Country: LB (occurrence: LB)
  Receive Date: 20131029
  Receipt Date: 20131029
  Transmission Date: 20140711
  Serious: Yes (Hospitalization)
  Sender: FDA-Public Use
  Company Number: LB-SA-2013SA107252

PATIENT
  Age: 60 Year
  Sex: Female

DRUGS (7)
  1. LANTUS SOLOSTAR [Suspect]
     Indication: DIABETES MELLITUS
     Dosage: START: 1 YEAR AGO DOSE:30 UNIT(S)
     Route: 058
     Dates: start: 2012
  2. SOLOSTAR [Concomitant]
     Indication: DEVICE THERAPY
  3. GALVUSMET [Concomitant]
     Indication: DIABETES MELLITUS
     Route: 048
  4. ASPICOT [Concomitant]
     Route: 048
  5. CRESTOR [Concomitant]
     Indication: DYSLIPIDAEMIA
     Route: 048
  6. ISOPTIN [Concomitant]
     Indication: HYPERTENSION
     Route: 048
  7. TAPAZOLE [Concomitant]
     Indication: THYROID DISORDER
     Route: 048

REACTIONS (2)
  - Myocardial infarction [Recovered/Resolved]
  - Thyroid disorder [Recovered/Resolved]
